FAERS Safety Report 5613876-7 (Version None)
Quarter: 2008Q1

REPORT INFORMATION
  Report Type: 
  Country: None (occurrence: None)
  Receive Date: 20080205
  Receipt Date: 20080123
  Transmission Date: 20080703
  Serious: Yes (Hospitalization, Other)
  Sender: FDA-Public Use
  Company Number: AT-ELI_LILLY_AND_COMPANY-AT200801005005

PATIENT
  Sex: Female

DRUGS (7)
  1. STRATTERA [Suspect]
     Dosage: 10 MG, DAILY (1/D)
     Route: 048
     Dates: start: 20071112, end: 20071121
  2. STRATTERA [Suspect]
     Dosage: 18 MG, DAILY (1/D)
     Route: 048
     Dates: start: 20071122, end: 20071128
  3. STRATTERA [Suspect]
     Dosage: 25 MG, DAILY (1/D)
     Route: 048
     Dates: start: 20071129, end: 20071205
  4. STRATTERA [Suspect]
     Dosage: 40 MG, DAILY (1/D)
     Route: 048
     Dates: start: 20071206, end: 20080107
  5. MUTAN [Concomitant]
     Dosage: 20 MG, DAILY (1/D)
     Route: 048
     Dates: start: 20071019, end: 20071029
  6. MUTAN [Concomitant]
     Dosage: 30 MG, DAILY (1/D)
     Route: 048
     Dates: start: 20071030, end: 20071111
  7. MUTAN [Concomitant]
     Dosage: 40 MG, DAILY (1/D)
     Route: 048
     Dates: start: 20071112, end: 20080107

REACTIONS (3)
  - CIRCULATORY COLLAPSE [None]
  - DRUG HYPERSENSITIVITY [None]
  - POST-TRAUMATIC STRESS DISORDER [None]
